FAERS Safety Report 7970650 (Version 2)
Quarter: 2013Q2

REPORT INFORMATION
  Report Type: Spontaneous
  Country: US (occurrence: None)
  Receive Date: 20110307
  Receipt Date: 20120926
  Transmission Date: 20140414
  Serious: Yes (Other)
  Sender: FDA-Public Use
  Company Number: AUR-APL-2011-00394

PATIENT
  Sex: 0

DRUGS (4)
  1. ALENDRONATE SODIUM [Suspect]
     Indication: OSTEOPOROSIS
     Dosage: WEEKLY-ORAL
     Route: 048
     Dates: start: 2008
  2. FOSAMAX [Suspect]
     Indication: OSTEOPOROSIS
     Dosage: WEEKLY-ORAL
     Route: 048
     Dates: start: 2003
  3. LISINOPRIL [Concomitant]
  4. VITAMIN D [Concomitant]

REACTIONS (2)
  - BONE DENSITY ABNORMAL [None]
  - ABDOMINAL PAIN UPPER [None]
